FAERS Safety Report 8450508-7 (Version None)
Quarter: 2012Q2

REPORT INFORMATION
  Report Type: 
  Country: None (occurrence: None)
  Receive Date: 20120620
  Receipt Date: 20120613
  Transmission Date: 20120825
  Serious: No
  Sender: FDA-Public Use
  Company Number: US-PFIZER INC-2012103423

PATIENT
  Sex: Female
  Weight: 67.12 kg

DRUGS (3)
  1. RANITIDINE [Concomitant]
     Indication: GASTROOESOPHAGEAL REFLUX DISEASE
     Dosage: 150 MG, DAILY
  2. HYZAAR [Concomitant]
     Indication: HYPERTENSION
     Dosage: 100/25 MG, DAILY
  3. PREMPRO [Suspect]
     Indication: HORMONE REPLACEMENT THERAPY
     Dosage: 1 DF, 1X/DAY
     Route: 048
     Dates: start: 20020101

REACTIONS (4)
  - MIGRAINE [None]
  - PANIC ATTACK [None]
  - HOT FLUSH [None]
  - TREMOR [None]
